FAERS Safety Report 15556417 (Version 9)
Quarter: 2019Q1

REPORT INFORMATION
  Report Type: Report from Study
  Country: US (occurrence: US)
  Receive Date: 20181026
  Receipt Date: 20190213
  Transmission Date: 20190417
  Serious: Yes (Other)
  Sender: FDA-Public Use
  Company Number: US-REGENERON PHARMACEUTICALS, INC.-2018-41700

PATIENT

DRUGS (21)
  1. REGN3767 [Suspect]
     Active Substance: FIANLIMAB
     Indication: HAEMATOPOIETIC NEOPLASM
     Dosage: 20 MG/KG, EVERY 21 DAYS
     Route: 042
     Dates: start: 20180314, end: 20180515
  2. REGN3767 [Suspect]
     Active Substance: FIANLIMAB
     Dosage: 10 MG/KG, EVERY 21 DAYS
     Route: 042
     Dates: start: 20180626, end: 20180917
  3. ACYCLOVIR                          /00587301/ [Concomitant]
     Active Substance: ACYCLOVIR
     Indication: STOMATITIS
     Dosage: 400 MG, Q8H
     Route: 048
     Dates: start: 20180910, end: 20180918
  4. RIVAROXABAN [Concomitant]
     Active Substance: RIVAROXABAN
     Indication: THROMBOSIS
     Dosage: 20 MG, QD
     Route: 048
     Dates: start: 201705
  5. POLYETHYLENE GLYCOL [Concomitant]
     Active Substance: POLYETHYLENE GLYCOLS
     Indication: CONSTIPATION
     Dosage: 17 G, QD
     Route: 048
     Dates: start: 20180606
  6. ALPRAZOLAM. [Concomitant]
     Active Substance: ALPRAZOLAM
     Indication: ANXIETY
     Dosage: 0.5 MG, AS NECESSARY
     Route: 048
     Dates: start: 2010
  7. NAPROXEN. [Concomitant]
     Active Substance: NAPROXEN
     Indication: CANCER PAIN
     Dosage: 500 MG, AS NECESSARY
     Route: 048
     Dates: start: 201802
  8. MAGNESIUM OXIDE. [Concomitant]
     Active Substance: MAGNESIUM OXIDE
     Indication: HYPOMAGNESAEMIA
     Dosage: 400 MG, TID
     Route: 048
     Dates: start: 20180917
  9. COMPAZINE                          /00013302/ [Concomitant]
     Active Substance: PROCHLORPERAZINE EDISYLATE
     Indication: NAUSEA
     Dosage: 10 MG, AS NECESSARY
     Route: 048
     Dates: start: 20180928
  10. ACETAMINOPHEN. [Concomitant]
     Active Substance: ACETAMINOPHEN
     Indication: ARTHRALGIA
     Dosage: 1000 MG, AS NECESSARY
     Route: 048
     Dates: start: 2017
  11. PAROXETINE. [Concomitant]
     Active Substance: PAROXETINE
     Indication: ANXIETY
     Dosage: 20 MG, QD
     Route: 048
     Dates: start: 2005
  12. DOCUSATE;SENNA ALEXANDRINA;SENNOSIDE A+B [Concomitant]
     Indication: CONSTIPATION
     Dosage: 8.6-50 MG, QD
     Route: 048
     Dates: start: 20180606
  13. CEMIPLIMAB [Suspect]
     Active Substance: CEMIPLIMAB
     Indication: HAEMATOPOIETIC NEOPLASM
     Dosage: 3 MG/KG EVERY 21 DAYS
     Route: 042
     Dates: start: 20180605, end: 20180917
  14. CALCIUM CARBONATE AND VITAMIN D [Concomitant]
     Active Substance: CALCIUM CARBONATE\VITAMIN D
     Indication: VITAMIN D DEFICIENCY
     Dosage: 400 IU, BID
     Route: 048
     Dates: start: 201802
  15. IMODIUM [Concomitant]
     Active Substance: LOPERAMIDE HYDROCHLORIDE
     Indication: DIARRHOEA
     Dosage: 1 TABLET PER PACKAGE INSERT
     Route: 048
     Dates: start: 20180926, end: 20181108
  16. OMEPRAZOLE. [Concomitant]
     Active Substance: OMEPRAZOLE
     Indication: DYSPEPSIA
     Dosage: 20 MG, QD
     Route: 048
     Dates: start: 2016
  17. FERROUS SULFATE. [Concomitant]
     Active Substance: FERROUS SULFATE
     Indication: IRON DEFICIENCY ANAEMIA
     Dosage: 325 MG, QD
     Route: 048
     Dates: start: 20180605
  18. CEMIPLIMAB [Suspect]
     Active Substance: CEMIPLIMAB
     Dosage: 3 MG/KG EVERY 21 DAYS
     Route: 042
     Dates: start: 20181030
  19. REGN3767 [Suspect]
     Active Substance: FIANLIMAB
     Dosage: 10 MG/KG, EVERY 21 DAYS
     Route: 042
     Dates: start: 20181030
  20. VITAMIN C [Concomitant]
     Active Substance: ASCORBIC ACID
     Indication: SUPPLEMENTATION THERAPY
     Dosage: 500 MG, QD
     Route: 048
     Dates: start: 20180409
  21. NAPROXEN. [Concomitant]
     Active Substance: NAPROXEN
     Dosage: 500 MG, BID
     Route: 048
     Dates: start: 20180610

REACTIONS (1)
  - Adrenal insufficiency [Recovered/Resolved with Sequelae]

NARRATIVE: CASE EVENT DATE: 20181006
